FAERS Safety Report 7291065-0 (Version None)
Quarter: 2011Q1

REPORT INFORMATION
  Report Type: 
  Country: None (occurrence: None)
  Receive Date: 20110202
  Receipt Date: 20110125
  Transmission Date: 20110831
  Serious: Yes (Hospitalization, Other)
  Sender: FDA-Public Use
  Company Number: 2010S1001083

PATIENT
  Age: 44 Year
  Sex: Male
  Weight: 74 kg

DRUGS (11)
  1. NORVASC [Concomitant]
  2. CELESTAMINE /00008501/ [Concomitant]
  3. PREV MEDS [Concomitant]
  4. PROPECIA [Concomitant]
  5. EPERISONE HYDROCHLORIDE [Suspect]
  6. EVIPROSTAT /01150001/ [Concomitant]
  7. CLARITIN /00917501/ [Concomitant]
  8. SEFTAC [Concomitant]
  9. FLOMAX [Concomitant]
  10. LIVALO [Suspect]
     Indication: LIPID METABOLISM DISORDER
     Dosage: 1 MG;1X;PO
     Route: 048
     Dates: start: 20091031, end: 20101213
  11. LOXONIN /00890702/ [Concomitant]

REACTIONS (2)
  - VISION BLURRED [None]
  - RHABDOMYOLYSIS [None]
